FAERS Safety Report 4465562-7 (Version None)
Quarter: 2004Q4

REPORT INFORMATION
  Report Type: 
  Country: None (occurrence: None)
  Receive Date: 20041004
  Receipt Date: 20040923
  Transmission Date: 20050328
  Serious: Yes (Life-Threatening, Hospitalization, Disabling)
  Sender: FDA-Public Use
  Company Number: FR-BRISTOL-MYERS SQUIBB COMPANY-12711586

PATIENT
  Age: 69 Year
  Sex: Male

DRUGS (4)
  1. CAPTOPRIL [Suspect]
     Indication: MYOCARDIAL INFARCTION
     Route: 048
     Dates: start: 19990101
  2. PLAVIX [Suspect]
     Indication: CORONARY ARTERIAL STENT INSERTION
     Route: 048
     Dates: start: 20020501, end: 20040623
  3. ASPIRIN [Concomitant]
  4. SIMVASTATIN [Concomitant]
     Indication: HYPERCHOLESTEROLAEMIA
     Dates: start: 19990101, end: 20040623

REACTIONS (6)
  - BLOOD CREATININE INCREASED [None]
  - CEREBELLAR HAEMORRHAGE [None]
  - EPISTAXIS [None]
  - GASTROINTESTINAL HAEMORRHAGE [None]
  - THERAPY NON-RESPONDER [None]
  - THROMBOCYTOPENIA [None]
